FAERS Safety Report 6377458-4 (Version None)
Quarter: 2009Q3

REPORT INFORMATION
  Report Type: 
  Country: None (occurrence: None)
  Receive Date: 20090925
  Receipt Date: 20090917
  Transmission Date: 20100115
  Serious: Yes (Disabling)
  Sender: FDA-Public Use
  Company Number: US-ELI_LILLY_AND_COMPANY-US200909004356

PATIENT
  Sex: Female

DRUGS (1)
  1. EVISTA [Suspect]
     Dosage: UNK, UNKNOWN
     Route: 065
     Dates: start: 20080901, end: 20090701

REACTIONS (13)
  - ARTHRITIS [None]
  - DISABILITY [None]
  - HYPOAESTHESIA [None]
  - JOINT EFFUSION [None]
  - JOINT SWELLING [None]
  - LIMB DISCOMFORT [None]
  - MUSCLE TWITCHING [None]
  - MYALGIA [None]
  - NERVE INJURY [None]
  - PAIN IN EXTREMITY [None]
  - PARAESTHESIA [None]
  - PARALYSIS [None]
  - WALKING DISABILITY [None]
